FAERS Safety Report 19034309 (Version 1)
Quarter: 2021Q1

REPORT INFORMATION
  Report Type: Report from Study
  Country: US (occurrence: US)
  Receive Date: 20210319
  Receipt Date: 20210319
  Transmission Date: 20210420
  Serious: Yes (Hospitalization)
  Sender: FDA-Public Use
  Company Number: US-GLAXOSMITHKLINE-US2021GSK054508

PATIENT
  Age: 39 Year
  Sex: Female
  Weight: 45.7 kg

DRUGS (11)
  1. LEVETIRACETAM. [Concomitant]
     Active Substance: LEVETIRACETAM
     Dosage: 1000 MG, BID
  2. HYDROMORPHONE [Concomitant]
     Active Substance: HYDROMORPHONE
     Dosage: 4 MG, Z (EVERY 4 HOURS )
  3. METOCLOPRAMIDE HYDROCHLORIDE. [Concomitant]
     Active Substance: METOCLOPRAMIDE HYDROCHLORIDE
     Dosage: 10 MG, BID
  4. MORPHINE EXTENDED RELEASE TABLET [Concomitant]
     Active Substance: MORPHINE SULFATE
     Dosage: 30 MG, BID
  5. DOSTARLIMAB [Suspect]
     Active Substance: DOSTARLIMAB
     Indication: ADENOCARCINOMA PANCREAS
     Dosage: 500 MG , 1 EVERY 3 WEEKS
     Route: 042
     Dates: start: 20210222, end: 20210222
  6. POTASSIUM CHLORIDE. [Concomitant]
     Active Substance: POTASSIUM CHLORIDE
     Dosage: 20 MG, BID
     Route: 048
  7. ACETAMINOPHEN. [Concomitant]
     Active Substance: ACETAMINOPHEN
     Dosage: 500 MG, Z (EVERY 6 HOURS)
  8. NIRAPARIB [Suspect]
     Active Substance: NIRAPARIB
     Indication: ADENOCARCINOMA PANCREAS
     Dosage: 200 MG, QD
     Route: 048
     Dates: start: 20210222
  9. APIXABAN [Concomitant]
     Active Substance: APIXABAN
     Dosage: 5 MG, BID
  10. POLYETHYLENE GLYCOL [Concomitant]
     Active Substance: POLYETHYLENE GLYCOLS
     Dosage: 17 G, QD
     Route: 048
  11. OMEPRAZOLE. [Concomitant]
     Active Substance: OMEPRAZOLE
     Dosage: 40 MG

REACTIONS (9)
  - Nausea [Unknown]
  - Hypoalbuminaemia [Unknown]
  - Abdominal pain [Unknown]
  - Back pain [Unknown]
  - Anaemia [Unknown]
  - Gastritis [Unknown]
  - Insomnia [Unknown]
  - Constipation [Unknown]
  - Vomiting [Unknown]

NARRATIVE: CASE EVENT DATE: 20210223
